FAERS Safety Report 4521164-5 (Version None)
Quarter: 2004Q4

REPORT INFORMATION
  Report Type: 
  Country: None (occurrence: None)
  Receive Date: 20041203
  Receipt Date: 20041123
  Transmission Date: 20050328
  Serious: Yes (Life-Threatening, Hospitalization)
  Sender: FDA-Public Use
  Company Number: 2004-BP-12060BP

PATIENT
  Age: 78 Year
  Sex: Female
  Weight: 57 kg

DRUGS (12)
  1. MICARDIS [Suspect]
     Indication: CEREBROVASCULAR ACCIDENT PROPHYLAXIS
     Dates: start: 20030103, end: 20040813
  2. MICARDIS [Suspect]
     Indication: MYOCARDIAL INFARCTION
     Dates: start: 20030103, end: 20040813
  3. MICARDIS [Suspect]
     Indication: PROPHYLAXIS
     Dates: start: 20030103, end: 20040813
  4. RAMIPRIL [Suspect]
     Indication: CEREBROVASCULAR ACCIDENT
     Dates: start: 20030103, end: 20030326
  5. RAMIPRIL [Suspect]
     Indication: MYOCARDIAL INFARCTION
     Dates: start: 20030103, end: 20030326
  6. RAMIPRIL [Suspect]
     Indication: PROPHYLAXIS
     Dates: start: 20030103, end: 20030326
  7. ISORDIL [Concomitant]
  8. ISOPTIN [Concomitant]
  9. ASPENT (ACETYLSALICYLIC ACID) [Concomitant]
  10. METFORMIN HCL [Concomitant]
  11. VITAMIN B COMPLEX (B-KIMPLEX ^LECIVA^) [Concomitant]
  12. FOLIC ACID [Concomitant]

REACTIONS (2)
  - ESCHERICHIA URINARY TRACT INFECTION [None]
  - HYPOTENSION [None]
